FAERS Safety Report 5207925-8 (Version None)
Quarter: 2007Q1

REPORT INFORMATION
  Report Type: 
  Country: None (occurrence: None)
  Receive Date: 20070110
  Receipt Date: 20061218
  Transmission Date: 20070707
  Serious: Yes (Other)
  Sender: FDA-Public Use
  Company Number: 100#08#2006-02779

PATIENT
  Age: 52 Year
  Sex: Female

DRUGS (1)
  1. WARFARIN(WARFARIN) (WARFARIN) [Suspect]
     Indication: DEEP VEIN THROMBOSIS
     Dosage: 5 MG

REACTIONS (17)
  - BLOOD CREATININE INCREASED [None]
  - BLOOD FIBRINOGEN DECREASED [None]
  - BLOOD LACTATE DEHYDROGENASE INCREASED [None]
  - GANGRENE [None]
  - HAEMODIALYSIS [None]
  - HAEMOGLOBIN DECREASED [None]
  - INTERNATIONAL NORMALISED RATIO INCREASED [None]
  - MENTAL STATUS CHANGES [None]
  - NAUSEA [None]
  - OLIGURIA [None]
  - PROTEIN C DECREASED [None]
  - RETICULOCYTE COUNT INCREASED [None]
  - SKIN NECROSIS [None]
  - THROMBOTIC MICROANGIOPATHY [None]
  - THROMBOTIC THROMBOCYTOPENIC PURPURA [None]
  - VENOUS THROMBOSIS [None]
  - VOMITING [None]
